FAERS Safety Report 14746817 (Version 1)
Quarter: 2018Q2

REPORT INFORMATION
  Report Type: Spontaneous
  Country: NL (occurrence: NL)
  Receive Date: 20180411
  Receipt Date: 20180411
  Transmission Date: 20180711
  Serious: Yes (Other)
  Sender: FDA-Public Use
  Company Number: NL-TEVA-2018-NL-880907

PATIENT
  Age: 22 Year
  Sex: Female
  Weight: 60 kg

DRUGS (1)
  1. ETHINYLESTRADIOL/LEVONORGESTREL TABLET, 30/150 ?G (MICROGRAM) [Suspect]
     Active Substance: ETHINYL ESTRADIOL\LEVONORGESTREL
     Indication: CONTRACEPTION
     Dosage: 1 DOSAGE FORMS DAILY;
     Route: 065
     Dates: start: 20180124, end: 20180210

REACTIONS (1)
  - Haemorrhage [Recovering/Resolving]

NARRATIVE: CASE EVENT DATE: 20180124
